FAERS Safety Report 6700460-7 (Version None)
Quarter: 2010Q2

REPORT INFORMATION
  Report Type: 
  Country: None (occurrence: None)
  Receive Date: 20100426
  Receipt Date: 20100409
  Transmission Date: 20101027
  Serious: Yes (Other)
  Sender: FDA-Public Use
  Company Number: DSA_42997_2010

PATIENT
  Sex: Male

DRUGS (2)
  1. BUPROPION HYDROCHLORIDE (BUPROPION HYDROCHLORIDE [Suspect]
     Indication: BIPOLAR DISORDER
     Dosage: DF ORAL
     Route: 048
     Dates: start: 20100216, end: 20100302
  2. CAMCOLIT [Concomitant]

REACTIONS (2)
  - PARKINSONISM [None]
  - POLLAKIURIA [None]
